FAERS Safety Report 25384890 (Version 1)
Quarter: 2025Q2

REPORT INFORMATION
  Report Type: Spontaneous
  Country: US (occurrence: None)
  Receive Date: 20250530
  Receipt Date: 20250530
  Transmission Date: 20250716
  Serious: Yes (Hospitalization)
  Sender: FDA-CTU
  Company Number: None

PATIENT
  Age: 77 Year
  Sex: Female

DRUGS (2)
  1. DROXIDOPA [Suspect]
     Active Substance: DROXIDOPA
     Indication: Autonomic neuropathy
     Dosage: FREQUENCY : TWICE A DAY;?
  2. DROXIDOPA [Suspect]
     Active Substance: DROXIDOPA
     Indication: Nerve degeneration

REACTIONS (1)
  - Hypotension [None]
